FAERS Safety Report 4306906-6 (Version None)
Quarter: 2004Q1

REPORT INFORMATION
  Report Type: 
  Country: None (occurrence: None)
  Receive Date: 20040227
  Receipt Date: 20030919
  Transmission Date: 20041129
  Serious: Yes (Other)
  Sender: FDA-Public Use
  Company Number: PHBS2003DK10344

PATIENT
  Age: 62 Year
  Sex: Female

DRUGS (5)
  1. FEMARA [Suspect]
     Dosage: 2.5 MG, QD
     Route: 048
     Dates: start: 20020401
  2. DIDRONATE [Concomitant]
     Dosage: 400 MG
  3. BRUFEN ^ABBOTT^ [Concomitant]
  4. GLUCOSAMINE [Concomitant]
  5. AKARIN [Concomitant]

REACTIONS (18)
  - ALOPECIA [None]
  - ARTHRALGIA [None]
  - CRYING [None]
  - DECREASED APPETITE [None]
  - DEPRESSION [None]
  - DRUG INTERACTION [None]
  - DYSGEUSIA [None]
  - FATIGUE [None]
  - HAIR TEXTURE ABNORMAL [None]
  - HOT FLUSH [None]
  - HYPOTRICHOSIS [None]
  - INSOMNIA [None]
  - MEMORY IMPAIRMENT [None]
  - MYALGIA [None]
  - NAUSEA [None]
  - POLLAKIURIA [None]
  - VISUAL DISTURBANCE [None]
  - WEIGHT DECREASED [None]
